FAERS Safety Report 8287248-3 (Version None)
Quarter: 2012Q2

REPORT INFORMATION
  Report Type: 
  Country: None (occurrence: None)
  Receive Date: 20120416
  Receipt Date: 20120402
  Transmission Date: 20120825
  Serious: Yes (Hospitalization, Other)
  Sender: FDA-Public Use
  Company Number: JP-NAPPMUNDI-GBR-2012-0009896

PATIENT
  Age: 71 Year
  Sex: Female
  Weight: 49.2 kg

DRUGS (5)
  1. BUPRENORPHINE [Suspect]
     Indication: MUSCLE SPASMS
  2. BUPRENORPHINE [Suspect]
     Indication: PAIN IN EXTREMITY
     Dosage: 5 MCG, Q1H
     Route: 062
     Dates: start: 20111110, end: 20120129
  3. BUPRENORPHINE [Suspect]
     Indication: BACK PAIN
  4. NEDORIL [Concomitant]
     Indication: ONYCHOMYCOSIS
     Dosage: UNK
     Route: 048
     Dates: start: 20110701, end: 20111101
  5. OPALMON [Concomitant]
     Indication: CHILLBLAINS
     Dosage: 15 MG, DAILY
     Route: 048
     Dates: start: 20111222, end: 20111222

REACTIONS (5)
  - ABNORMAL LOSS OF WEIGHT [None]
  - ASTHENIA [None]
  - HYPOGLYCAEMIA [None]
  - DECREASED APPETITE [None]
  - GASTRITIS [None]
